FAERS Safety Report 24241715 (Version 5)
Quarter: 2024Q4

REPORT INFORMATION
  Report Type: Report from Study
  Country: CA (occurrence: CA)
  Receive Date: 20240823
  Receipt Date: 20241206
  Transmission Date: 20250115
  Serious: Yes (Other)
  Sender: TAKEDA
  Company Number: CA-TAKEDA-2024TUS083547

PATIENT
  Age: 52 Year
  Sex: Female

DRUGS (4)
  1. VEDOLIZUMAB [Suspect]
     Active Substance: VEDOLIZUMAB
     Indication: Crohn^s disease
     Dosage: 300 MILLIGRAM
  2. VEDOLIZUMAB [Suspect]
     Active Substance: VEDOLIZUMAB
     Dosage: 300 MILLIGRAM, Q4WEEKS
     Dates: start: 20241128
  3. FENTANYL [Concomitant]
     Active Substance: FENTANYL
     Dosage: UNK
  4. METFORMIN [Concomitant]
     Active Substance: METFORMIN HYDROCHLORIDE
     Dosage: UNK

REACTIONS (8)
  - Crohn^s disease [Unknown]
  - Ovarian cyst [Unknown]
  - Myalgia [Unknown]
  - Migraine [Unknown]
  - Off label use [Unknown]
  - Hyperhidrosis [Unknown]
  - Fatigue [Unknown]
  - Therapeutic reaction time decreased [Recovering/Resolving]

NARRATIVE: CASE EVENT DATE: 20241128
